FAERS Safety Report 19886628 (Version 1)
Quarter: 2021Q3

REPORT INFORMATION
  Report Type: Spontaneous
  Country: US (occurrence: US)
  Receive Date: 20210928
  Receipt Date: 20210928
  Transmission Date: 20211014
  Serious: No
  Sender: FDA-Public Use
  Company Number: US-JNJFOC-20210932184

PATIENT
  Age: 57 Year
  Sex: Female

DRUGS (1)
  1. WOMENS ROGAINE UNSCENTED [Suspect]
     Active Substance: MINOXIDIL
     Indication: ALOPECIA
     Dosage: 1 PUMP PER USE
     Route: 061
     Dates: start: 20200915

REACTIONS (3)
  - Inappropriate schedule of product administration [Unknown]
  - Hair texture abnormal [Recovered/Resolved]
  - Trichorrhexis [Recovered/Resolved]

NARRATIVE: CASE EVENT DATE: 20201015
